FAERS Safety Report 9481297 (Version 2)
Quarter: 2013Q3

REPORT INFORMATION
  Report Type: Spontaneous
  Country: US (occurrence: US)
  Receive Date: 20130828
  Receipt Date: 20130828
  Transmission Date: 20140515
  Serious: Yes (Other)
  Sender: FDA-Public Use
  Company Number: US-AMGEN-KDL157967

PATIENT
  Age: 59 Year
  Sex: Female

DRUGS (2)
  1. ENBREL [Suspect]
     Indication: RHEUMATOID ARTHRITIS
     Dosage: 50 MG, QWK
     Route: 058
     Dates: start: 20051010, end: 20051031
  2. LEFLUNOMIDE [Concomitant]
     Dosage: 10 MG, QD
     Dates: start: 20051108

REACTIONS (6)
  - Swelling face [Unknown]
  - Eye swelling [Unknown]
  - Gingival swelling [Unknown]
  - Urticaria [Unknown]
  - Pruritus [Unknown]
  - Injection site reaction [Unknown]
